FAERS Safety Report 5519797-2 (Version None)
Quarter: 2007Q4

REPORT INFORMATION
  Report Type: 
  Country: None (occurrence: None)
  Receive Date: 20071116
  Receipt Date: 20070822
  Transmission Date: 20080405
  Serious: No
  Sender: FDA-Public Use
  Company Number: A0674724A

PATIENT
  Age: 77 Year
  Sex: Female

DRUGS (3)
  1. COREG CR [Suspect]
     Dosage: 3.125MG PER DAY
     Route: 048
  2. SYNTHROID [Concomitant]
  3. NITROGLYCERIN [Concomitant]

REACTIONS (1)
  - DIZZINESS [None]
